FAERS Safety Report 7255922-3 (Version None)
Quarter: 2011Q1

REPORT INFORMATION
  Report Type: 
  Country: None (occurrence: None)
  Receive Date: 20110129
  Receipt Date: 20100514
  Transmission Date: 20110831
  Serious: No
  Sender: FDA-Public Use
  Company Number: US-ABBOTT-10P-163-0645585-00

PATIENT
  Age: 49 Year
  Sex: Female

DRUGS (9)
  1. HUMIRA [Suspect]
     Indication: CROHN'S DISEASE
     Dosage: LOADING DOSE ONCE
     Dates: start: 20100501, end: 20100501
  2. HUMIRA [Suspect]
     Dates: start: 20100501
  3. ALBUTEROL [Concomitant]
     Indication: ASTHMA
     Route: 055
  4. PREVACID [Concomitant]
     Indication: GASTROOESOPHAGEAL REFLUX DISEASE
  5. LEVBID [Concomitant]
     Indication: IRRITABLE BOWEL SYNDROME
  6. PREDNISONE [Concomitant]
     Indication: CROHN'S DISEASE
     Dosage: TAPERING DOSE, NOT REPORTED
     Route: 048
     Dates: start: 20100101
  7. ASACHOL [Concomitant]
     Indication: CROHN'S DISEASE
  8. IMURAN [Concomitant]
     Indication: PRODUCT USED FOR UNKNOWN INDICATION
  9. COLACE [Concomitant]
     Indication: PRODUCT USED FOR UNKNOWN INDICATION

REACTIONS (1)
  - NASOPHARYNGITIS [None]
